FAERS Safety Report 5048267-3 (Version None)
Quarter: 2006Q3

REPORT INFORMATION
  Report Type: 
  Country: None (occurrence: None)
  Receive Date: 20060711
  Receipt Date: 20060629
  Transmission Date: 20061208
  Serious: Yes (Death)
  Sender: FDA-Public Use
  Company Number: US-SANOFI-SYNTHELABO-A03200604259

PATIENT
  Sex: Male
  Weight: 85.71 kg

DRUGS (3)
  1. PLAVIX [Suspect]
     Indication: DRUG USE FOR UNKNOWN INDICATION
     Dosage: UNK
     Route: 048
     Dates: start: 20050101
  2. SINGULAIR [Concomitant]
     Dosage: UNK
     Route: 048
  3. LEXAPRO [Concomitant]
     Dosage: UNK
     Route: 048

REACTIONS (2)
  - DEATH [None]
  - PNEUMONIA [None]
